FAERS Safety Report 9029152 (Version 2)
Quarter: 2013Q3

REPORT INFORMATION
  Report Type: Spontaneous
  Country: US (occurrence: ES)
  Receive Date: 20130124
  Receipt Date: 20130712
  Transmission Date: 20140515
  Serious: Yes (Other)
  Sender: FDA-Public Use
  Company Number: ES-009507513-0905ESP00056

PATIENT
  Age: 36 Month
  Sex: Male

DRUGS (1)
  1. SINGULAIR 4 MG GRANULADO [Suspect]
     Indication: ASTHMA
     Dosage: 4 MG, QD
     Route: 048
     Dates: start: 20090218, end: 20090306

REACTIONS (8)
  - Crying [Recovered/Resolved]
  - Personality change [Recovered/Resolved]
  - Nightmare [Recovered/Resolved]
  - Insomnia [Recovered/Resolved]
  - Diarrhoea [Unknown]
  - Irritability [Recovered/Resolved]
  - Abdominal pain [Unknown]
  - Agitation [Recovered/Resolved]
